FAERS Safety Report 6071611-5 (Version None)
Quarter: 2009Q1

REPORT INFORMATION
  Report Type: 
  Country: None (occurrence: None)
  Receive Date: 20090205
  Receipt Date: 20090126
  Transmission Date: 20090719
  Serious: Yes (Other)
  Sender: FDA-Public Use
  Company Number: DSU-2009-00253

PATIENT
  Age: 44 Year
  Sex: Male

DRUGS (2)
  1. OLMETEC HCT (HYDROCHLOROTHIAZIDE, OLMESARTAN MEDOXOMIL) [Suspect]
     Indication: HYPERTENSION
     Dosage: 20/12.5 (QD) ,PER ORAL
     Route: 048
     Dates: start: 20060210
  2. MOBIC [Concomitant]

REACTIONS (6)
  - DIZZINESS [None]
  - HEADACHE [None]
  - ILL-DEFINED DISORDER [None]
  - MENISCUS OPERATION [None]
  - PROCEDURAL PAIN [None]
  - RENAL CYST [None]
